FAERS Safety Report 6002344-9 (Version None)
Quarter: 2008Q4

REPORT INFORMATION
  Report Type: 
  Country: None (occurrence: None)
  Receive Date: 20081215
  Receipt Date: 20081209
  Transmission Date: 20090506
  Serious: Yes (Other)
  Sender: FDA-Public Use
  Company Number: GB-BAUSCH-2008BL005152

PATIENT
  Age: 68 Year
  Sex: Female

DRUGS (2)
  1. DEXAMETHASONE [Suspect]
     Indication: MULTIPLE MYELOMA
  2. BORTEZOMIB [Suspect]
     Indication: MULTIPLE MYELOMA

REACTIONS (1)
  - NEUROPATHY PERIPHERAL [None]
